FAERS Safety Report 7898452-8 (Version None)
Quarter: 2011Q4

REPORT INFORMATION
  Report Type: 
  Country: None (occurrence: None)
  Receive Date: 20111107
  Receipt Date: 20111031
  Transmission Date: 20120403
  Serious: Yes (Disabling, Other)
  Sender: FDA-Public Use
  Company Number: NZ-PFIZER INC-2011236899

PATIENT
  Age: 30 Year
  Sex: Male
  Weight: 90 kg

DRUGS (4)
  1. HUMALOG [Concomitant]
     Indication: TYPE 1 DIABETES MELLITUS
     Dosage: 10-40 IU WITH MEALS
     Route: 058
  2. VARENICLINE TARTRATE [Suspect]
     Indication: SMOKING CESSATION THERAPY
     Dosage: UNK
     Route: 048
     Dates: end: 20110801
  3. INSULIN GLARGINE [Concomitant]
     Indication: TYPE 1 DIABETES MELLITUS
     Dosage: 30 IU, 1X/DAY
     Route: 058
  4. LANTUS [Concomitant]
     Indication: TYPE 1 DIABETES MELLITUS
     Dosage: 38 IU, 1X/DAY IN THE MORNING
     Route: 058

REACTIONS (11)
  - ABSCESS [None]
  - PERIODONTAL INFECTION [None]
  - ORAL PAIN [None]
  - COUGH [None]
  - PERIODONTAL DISEASE [None]
  - PYREXIA [None]
  - GINGIVAL BLEEDING [None]
  - BLOOD GLUCOSE INCREASED [None]
  - GINGIVITIS [None]
  - GINGIVAL PAIN [None]
  - GINGIVAL RECESSION [None]
